FAERS Safety Report 6374715-2 (Version None)
Quarter: 2009Q3

REPORT INFORMATION
  Report Type: 
  Country: None (occurrence: None)
  Receive Date: 20090924
  Receipt Date: 20090909
  Transmission Date: 20100115
  Serious: Yes (Other)
  Sender: FDA-Public Use
  Company Number: GB-PFIZER INC-2009265786

PATIENT
  Age: 73 Year

DRUGS (14)
  1. CHLORAMPHENICOL AND CHLORAMPHENICOL PALMITATE AND CHLORAMPHENICOL SODI [Suspect]
  2. PHENELZINE SULFATE [Suspect]
     Dosage: 15 MG, 3X/DAY
  3. ADCAL-D3 [Concomitant]
     Dosage: UNK
  4. AMISULPRIDE [Concomitant]
     Dosage: UNK
  5. BENDROFLUMETHIAZIDE [Concomitant]
     Dosage: 2.5 MG, 1X/DAY
  6. CEFALEXIN [Concomitant]
     Dosage: UNK
  7. CO-CODAMOL [Concomitant]
     Dosage: UNK
     Dates: start: 20090501
  8. DIAZEPAM [Concomitant]
     Dosage: 2 MG, 2X/DAY
  9. NITROGLYCERIN [Concomitant]
     Dosage: UNK
  10. LOPERAMIDE [Concomitant]
     Dosage: UNK
  11. METOCLOPRAMIDE [Concomitant]
     Dosage: UNK
  12. OXYGEN [Concomitant]
  13. PARACETAMOL [Concomitant]
     Dosage: 1 G, 4X/DAY
  14. RISEDRONATE SODIUM [Concomitant]
     Dosage: UNK

REACTIONS (1)
  - BLOOD POTASSIUM DECREASED [None]
